FAERS Safety Report 23657231 (Version 1)
Quarter: 2024Q1

REPORT INFORMATION
  Report Type: Spontaneous
  Country: US (occurrence: None)
  Receive Date: 20240320
  Receipt Date: 20240320
  Transmission Date: 20240409
  Serious: No
  Sender: FDA-Public Use
  Company Number: None

PATIENT
  Age: 32 Year
  Sex: Female

DRUGS (3)
  1. DUPIXENT [Suspect]
     Active Substance: DUPILUMAB
     Indication: Nasal polyps
     Dosage: FREQUENCY : EVERY OTHER WEEK;?
     Route: 058
     Dates: start: 20240227
  2. FLONASE [Concomitant]
  3. ZYRTEC [Concomitant]

REACTIONS (3)
  - Vision blurred [None]
  - Vision blurred [None]
  - Urine output decreased [None]

NARRATIVE: CASE EVENT DATE: 20240311
